FAERS Safety Report 8313562-9 (Version None)
Quarter: 2012Q2

REPORT INFORMATION
  Report Type: 
  Country: None (occurrence: None)
  Receive Date: 20120424
  Receipt Date: 20120417
  Transmission Date: 20120825
  Serious: Yes (Death, Hospitalization, Other)
  Sender: FDA-Public Use
  Company Number: 2012SP013184

PATIENT
  Age: 69 Year
  Sex: Female

DRUGS (4)
  1. ACYCLOVIR [Concomitant]
  2. COTRIM [Concomitant]
  3. RADIOTHERAPY [Concomitant]
  4. TEMODAL [Suspect]
     Indication: GLIOBLASTOMA MULTIFORME
     Dosage: 75 MG/M2;ONCE;PO
     Route: 048
     Dates: start: 20111004, end: 20111102

REACTIONS (5)
  - APLASTIC ANAEMIA [None]
  - BRONCHOPNEUMONIA [None]
  - DECREASED APPETITE [None]
  - PANCYTOPENIA [None]
  - MENTAL IMPAIRMENT [None]
